FAERS Safety Report 8539799-1 (Version None)
Quarter: 2012Q3

REPORT INFORMATION
  Report Type: 
  Country: None (occurrence: None)
  Receive Date: 20120726
  Receipt Date: 20120716
  Transmission Date: 20120928
  Serious: Yes (Death)
  Sender: FDA-Public Use
  Company Number: US-SANOFI-AVENTIS-2012SA050709

PATIENT
  Age: 65 Year
  Sex: Male
  Weight: 90 kg

DRUGS (11)
  1. DOCETAXEL [Suspect]
     Route: 041
     Dates: start: 20120619, end: 20120619
  2. DILTIAZEM [Concomitant]
     Dates: start: 20110101, end: 20120707
  3. CIPROFLOXACIN [Concomitant]
     Indication: INFECTION PROPHYLAXIS
     Dates: start: 20120623, end: 20120702
  4. ASPIRIN [Concomitant]
     Indication: PROPHYLAXIS
     Dates: start: 20110101, end: 20120707
  5. PREDNISONE [Concomitant]
     Indication: GOUT
     Dates: start: 20120113, end: 20120707
  6. DOCETAXEL [Suspect]
     Indication: NON-SMALL CELL LUNG CANCER STAGE IV
     Route: 041
     Dates: start: 20120320, end: 20120320
  7. ATROPINE SULFATE/DIPHENOXYLATE HYDROCHLORIDE [Concomitant]
  8. DEXAMETHASONE [Concomitant]
     Indication: ALLERGY PROPHYLAXIS
     Dates: start: 20120618, end: 20120620
  9. BLINDED THERAPY [Suspect]
     Indication: NON-SMALL CELL LUNG CANCER STAGE IV
     Route: 042
     Dates: start: 20120320, end: 20120619
  10. FLUTICASONE PROPIONATE/SALMETEROL [Concomitant]
     Indication: ASTHMA
  11. IMODIUM [Concomitant]
     Dates: start: 20120323, end: 20120707

REACTIONS (1)
  - CARDIAC ARREST [None]
